FAERS Safety Report 6209168-8 (Version None)
Quarter: 2009Q2

REPORT INFORMATION
  Report Type: 
  Country: None (occurrence: None)
  Receive Date: 20090529
  Receipt Date: 20090525
  Transmission Date: 20091009
  Serious: Yes (Death)
  Sender: FDA-Public Use
  Company Number: US-ABBOTT-09P-163-0576066-00

PATIENT

DRUGS (2)
  1. KALETRA [Suspect]
     Indication: HIV INFECTION
     Dosage: 400/100MG
     Route: 048
  2. EMTRICITABINE W/TENOFOVIR [Concomitant]
     Indication: HIV INFECTION
     Dosage: 200MG/300MG
     Route: 048

REACTIONS (1)
  - HEPATIC FAILURE [None]
